FAERS Safety Report 8394595-3 (Version None)
Quarter: 2012Q1

REPORT INFORMATION
  Report Type: 
  Country: None (occurrence: None)
  Receive Date: 20120323
  Receipt Date: 20111115
  Transmission Date: 20120608
  Serious: Yes (Other)
  Sender: FDA-Public Use
  Company Number: 163-21880-11050470

PATIENT
  Age: 72 Year
  Sex: Male

DRUGS (4)
  1. REVLIMID [Suspect]
     Indication: MYELODYSPLASTIC SYNDROME
     Dosage: 15 MG, 1 IN 1 D, PO
     Route: 048
     Dates: start: 20110501, end: 20110705
  2. SPIRIVA [Concomitant]
  3. NEUPOGEN [Concomitant]
  4. SYMBICORT (SYMBICORT TURBUHALER ^DRACO^) [Concomitant]

REACTIONS (2)
  - BACTERAEMIA [None]
  - NEUTROPENIA [None]
